FAERS Safety Report 24556510 (Version 1)
Quarter: 2024Q4

REPORT INFORMATION
  Report Type: Spontaneous
  Country: US (occurrence: None)
  Receive Date: 20241027
  Receipt Date: 20241027
  Transmission Date: 20250115
  Serious: No
  Sender: Public
  Company Number: None

PATIENT
  Age: 40 Year
  Sex: Female
  Weight: 86.4 kg

DRUGS (4)
  1. ZEPBOUND [Suspect]
     Active Substance: TIRZEPATIDE
     Indication: Obesity
     Dosage: OTHER QUANTITY : 1 INJECTION(S);?OTHER FREQUENCY : WEEKLY;?OTHER ROUTE : SUBCUTANEOUS INJECTION;?
     Route: 050
     Dates: start: 20241026
  2. DULOXETINE [Concomitant]
  3. ALPRAZOLAM [Concomitant]
  4. VITAMINS [Concomitant]
     Active Substance: VITAMINS

REACTIONS (2)
  - Headache [None]
  - Myalgia [None]

NARRATIVE: CASE EVENT DATE: 20241027
